FAERS Safety Report 7377574-4 (Version None)
Quarter: 2011Q1

REPORT INFORMATION
  Report Type: 
  Country: None (occurrence: None)
  Receive Date: 20110317
  Receipt Date: 20110302
  Transmission Date: 20110831
  Serious: Yes (Hospitalization)
  Sender: FDA-Public Use
  Company Number: 2011GW000145

PATIENT
  Age: 88 Year
  Sex: Female

DRUGS (3)
  1. METOPROLOL [Concomitant]
  2. ASPIRIN [Concomitant]
  3. FLECAINIDE ACETATE [Suspect]
     Indication: ATRIAL FIBRILLATION
     Dosage: 100 MG;BID;PO
     Route: 048

REACTIONS (14)
  - HYPERKALAEMIA [None]
  - BLOOD PRESSURE DECREASED [None]
  - ATRIOVENTRICULAR BLOCK SECOND DEGREE [None]
  - DEVICE CAPTURING ISSUE [None]
  - DEHYDRATION [None]
  - GLOMERULAR FILTRATION RATE DECREASED [None]
  - BLOOD CREATININE INCREASED [None]
  - TOXICITY TO VARIOUS AGENTS [None]
  - HEART RATE IRREGULAR [None]
  - DEVICE MALFUNCTION [None]
  - BLOOD UREA INCREASED [None]
  - SYNCOPE [None]
  - ELECTROCARDIOGRAM T WAVE PEAKED [None]
  - ELECTROCARDIOGRAM QRS COMPLEX PROLONGED [None]
